FAERS Safety Report 10171319 (Version 2)
Quarter: 2014Q2

REPORT INFORMATION
  Report Type: Spontaneous
  Country: US (occurrence: US)
  Receive Date: 20140514
  Receipt Date: 20140514
  Transmission Date: 20141212
  Serious: Yes (Other)
  Sender: FDA-Public Use
  Company Number: US-DRREDDYS-USA/USA/14/0040187

PATIENT
  Age: 77 Year
  Sex: Male

DRUGS (1)
  1. CLOPIDOGREL BISULFATE TABLETS 300 MG [Suspect]
     Indication: STENT PLACEMENT
     Route: 048

REACTIONS (3)
  - Arrhythmia [Unknown]
  - Drug ineffective [Unknown]
  - Product quality issue [Unknown]
